FAERS Safety Report 7348596-4 (Version None)
Quarter: 2011Q1

REPORT INFORMATION
  Report Type: 
  Country: None (occurrence: None)
  Receive Date: 20110314
  Receipt Date: 20110308
  Transmission Date: 20110831
  Serious: Yes (Hospitalization)
  Sender: FDA-Public Use
  Company Number: US-BIOGENIDEC-2008BI024849

PATIENT
  Age: 33 Year
  Sex: Female

DRUGS (4)
  1. TYLENOL [Concomitant]
     Indication: PREMEDICATION
     Dates: start: 20080919, end: 20080919
  2. CLARITIN [Concomitant]
     Indication: PREMEDICATION
     Dates: start: 20080919, end: 20080919
  3. AVONEX [Concomitant]
     Indication: MULTIPLE SCLEROSIS
     Route: 030
  4. TYSABRI [Suspect]
     Indication: MULTIPLE SCLEROSIS
     Route: 042
     Dates: start: 20070928, end: 20090122

REACTIONS (6)
  - INFUSION RELATED REACTION [None]
  - FEELING COLD [None]
  - PRURITUS [None]
  - ERYTHEMA [None]
  - URTICARIA [None]
  - DRUG SPECIFIC ANTIBODY PRESENT [None]
